FAERS Safety Report 7372975-2 (Version None)
Quarter: 2011Q1

REPORT INFORMATION
  Report Type: 
  Country: None (occurrence: None)
  Receive Date: 20110311
  Receipt Date: 20110224
  Transmission Date: 20110831
  Serious: Yes (Other)
  Sender: FDA-Public Use
  Company Number: 2011SP008855

PATIENT
  Sex: Female

DRUGS (24)
  1. LORATADINE [Concomitant]
  2. VITAMIN D [Concomitant]
  3. SINGULAIR [Concomitant]
  4. METFORMIN [Concomitant]
  5. POTASSIUM CHLORIDE [Concomitant]
  6. NASONEX [Concomitant]
  7. HUMIRA [Concomitant]
  8. ADVAIR DISKUS 100/50 [Concomitant]
  9. FISH OIL [Concomitant]
  10. HYDROXYCHLOROQUINE SULFATE [Concomitant]
  11. MECLIZINE [Concomitant]
  12. VERAPAMIL [Concomitant]
  13. EMERAL [Concomitant]
  14. REMICADE [Concomitant]
  15. PROVENTIL [Suspect]
     Indication: PRODUCT USED FOR UNKNOWN INDICATION
     Dosage: QID
  16. LYRICA [Concomitant]
  17. VICODIN [Concomitant]
  18. AMLODIPINE [Concomitant]
  19. PREDNISONE [Concomitant]
  20. FOLIC ACID [Concomitant]
  21. VITAMIN B [Concomitant]
  22. KINERET [Concomitant]
  23. SULFASALAZINE [Concomitant]
  24. CINNAMON [Concomitant]

REACTIONS (5)
  - ACCIDENT [None]
  - VIITH NERVE PARALYSIS [None]
  - GAIT DISTURBANCE [None]
  - MULTIPLE FRACTURES [None]
  - ERYTHEMA [None]
